FAERS Safety Report 12556160 (Version 4)
Quarter: 2016Q3

REPORT INFORMATION
  Report Type: Spontaneous
  Country: US (occurrence: US)
  Receive Date: 20160714
  Receipt Date: 20160803
  Transmission Date: 20161109
  Serious: Yes (Death, Hospitalization)
  Sender: FDA-Public Use
  Company Number: US-UNITED THERAPEUTICS-UNT-2016-010244

PATIENT
  Age: 79 Year
  Sex: Female
  Weight: 67.12 kg

DRUGS (1)
  1. ORENITRAM [Suspect]
     Active Substance: TREPROSTINIL
     Indication: PULMONARY ARTERIAL HYPERTENSION
     Dosage: 0.25 MG, BID
     Route: 048
     Dates: start: 20151111

REACTIONS (3)
  - Fall [Unknown]
  - Cardiac failure congestive [Fatal]
  - Hip fracture [Unknown]

NARRATIVE: CASE EVENT DATE: 20160607
